FAERS Safety Report 5644247-5 (Version None)
Quarter: 2008Q1

REPORT INFORMATION
  Report Type: 
  Country: None (occurrence: None)
  Receive Date: 20080227
  Receipt Date: 20080227
  Transmission Date: 20080703
  Serious: Yes (Hospitalization)
  Sender: FDA-Public Use
  Company Number: None

PATIENT
  Age: 44 Year
  Sex: Male
  Weight: 68.0396 kg

DRUGS (3)
  1. ICY HOT CHATTEM, INC. [Suspect]
     Indication: ARTHRALGIA
     Dates: start: 20071113, end: 20071113
  2. ICY HOT CHATTEM, INC. [Suspect]
     Indication: BACK PAIN
     Dates: start: 20071113, end: 20071113
  3. ICY HOT CHATTEM, INC. [Suspect]
     Indication: BURNS SECOND DEGREE
     Dates: start: 20071113, end: 20071113

REACTIONS (1)
  - BURNS SECOND DEGREE [None]
